FAERS Safety Report 19064184 (Version 1)
Quarter: 2021Q1

REPORT INFORMATION
  Report Type: Report from Study
  Country: JP (occurrence: JP)
  Receive Date: 20210326
  Receipt Date: 20210326
  Transmission Date: 20210420
  Serious: Yes (Other)
  Sender: FDA-Public Use
  Company Number: JP-GILEAD-2021-0522798

PATIENT
  Age: 43 Year
  Sex: Male

DRUGS (11)
  1. EMTRICITABINE/TENOFOVIR ALAFENAMIDE [Suspect]
     Active Substance: EMTRICITABINE\TENOFOVIR
     Indication: HIV INFECTION
     Dosage: UNK
     Route: 065
  2. CYTARABINE. [Concomitant]
     Active Substance: CYTARABINE
     Indication: LYMPHOMA
  3. PIRARUBICIN HCL [Concomitant]
     Active Substance: PIRARUBICIN
     Indication: LYMPHOMA
  4. DOLUTEGRAVIR SODIUM [Concomitant]
     Active Substance: DOLUTEGRAVIR SODIUM
     Indication: HIV INFECTION
  5. CYCLOPHOSPHAMIDE. [Concomitant]
     Active Substance: CYCLOPHOSPHAMIDE
     Indication: LYMPHOMA
     Dosage: UNK
  6. DOXORUBICIN [Concomitant]
     Active Substance: DOXORUBICIN
     Indication: LYMPHOMA
  7. VINCRISTINE [Concomitant]
     Active Substance: VINCRISTINE
     Indication: LYMPHOMA
  8. PREDNISOLONE. [Concomitant]
     Active Substance: PREDNISOLONE
     Indication: LYMPHOMA
  9. DEXAMETHASONE. [Concomitant]
     Active Substance: DEXAMETHASONE
     Indication: LYMPHOMA
  10. RITUXIMAB. [Concomitant]
     Active Substance: RITUXIMAB
     Indication: LYMPHOMA
  11. METHOTREXATE. [Concomitant]
     Active Substance: METHOTREXATE
     Indication: LYMPHOMA

REACTIONS (1)
  - Pancytopenia [Unknown]
